FAERS Safety Report 5028128-6 (Version None)
Quarter: 2006Q2

REPORT INFORMATION
  Report Type: 
  Country: None (occurrence: None)
  Receive Date: 20060613
  Receipt Date: 20060603
  Transmission Date: 20061013
  Serious: Yes (Hospitalization, Disabling)
  Sender: FDA-Public Use
  Company Number: 2006-06-0241

PATIENT
  Age: 58 Year
  Sex: Female

DRUGS (3)
  1. INTERFERON ALFA [Suspect]
     Indication: HEPATITIS C
     Dosage: 5 MU TIW
     Dates: start: 20050701
  2. RIBAVIRIN [Suspect]
     Indication: HEPATITIS C
     Dosage: 1000-800 MG *QD
     Dates: start: 20050701
  3. EUTHYROX [Concomitant]

REACTIONS (7)
  - ANAEMIA [None]
  - APHTHOUS STOMATITIS [None]
  - ESCHERICHIA URINARY TRACT INFECTION [None]
  - NEUTROPENIA [None]
  - OSTEOPENIA [None]
  - OSTEOPOROSIS [None]
  - SPINAL FRACTURE [None]
